FAERS Safety Report 9243284 (Version 3)
Quarter: 2019Q4

REPORT INFORMATION
  Report Type: Spontaneous
  Country: US (occurrence: US)
  Receive Date: 20130419
  Receipt Date: 20191219
  Transmission Date: 20200122
  Serious: Yes (Other)
  Sender: FDA-Public Use
  Company Number: US-UCBSA-083670

PATIENT
  Age: 67 Year
  Sex: Female

DRUGS (11)
  1. SIMVASTATIN. [Concomitant]
     Active Substance: SIMVASTATIN
     Dosage: UNKNOWN DOSE
  2. METHOTREXATE. [Concomitant]
     Active Substance: METHOTREXATE
     Dosage: 2.5 MG 7 TABS WEEKLY
     Route: 048
  3. ATELVIA [Concomitant]
     Active Substance: RISEDRONATE SODIUM
     Dosage: 35 MG, WEEKLY (QW)
     Route: 048
  4. LISINOPRIL. [Concomitant]
     Active Substance: LISINOPRIL
     Dosage: 20 MG, ONCE DAILY (QD)
     Route: 048
  5. METFORMIN [Concomitant]
     Active Substance: METFORMIN HYDROCHLORIDE
     Dosage: 500 MG, 2X/DAY (BID)
     Route: 048
  6. CALCIUM [Concomitant]
     Active Substance: CALCIUM
     Dosage: 500 MG, ONCE DAILY (QD)
  7. CIMZIA [Suspect]
     Active Substance: CERTOLIZUMAB PEGOL
     Indication: RHEUMATOID ARTHRITIS
     Dosage: DOSE : 400
     Route: 058
     Dates: start: 201303, end: 20130321
  8. FOLIC ACID. [Concomitant]
     Active Substance: FOLIC ACID
     Dosage: 1 MG, ONCE DAILY (QD)
     Route: 048
  9. PENNSAID [Concomitant]
     Active Substance: DICLOFENAC SODIUM
     Dosage: 1.5% 40GTT AS NEEDED
     Route: 061
  10. VIT D [Concomitant]
     Active Substance: VITAMIN D NOS
     Dosage: 1000 IU, ONCE DAILY (QD)
  11. MOBIC [Concomitant]
     Active Substance: MELOXICAM
     Dosage: 15 MG, AS NEEDED (PRN)
     Route: 048

REACTIONS (1)
  - Oral herpes [Recovered/Resolved]

NARRATIVE: CASE EVENT DATE: 20130321
